FAERS Safety Report 21831945 (Version 1)
Quarter: 2023Q1

REPORT INFORMATION
  Report Type: Spontaneous
  Country: US (occurrence: None)
  Receive Date: 20230106
  Receipt Date: 20230106
  Transmission Date: 20230417
  Serious: Yes (Other)
  Sender: FDA-Public Use
  Company Number: None

PATIENT
  Age: 33 Year
  Sex: Female
  Weight: 65.25 kg

DRUGS (2)
  1. ASENAPINE [Suspect]
     Active Substance: ASENAPINE
     Indication: Insomnia
     Dosage: FREQUENCY : DAILY;?
     Route: 048
     Dates: start: 20220826
  2. ASENAPINE [Suspect]
     Active Substance: ASENAPINE
     Indication: Bipolar disorder

REACTIONS (4)
  - Product substitution issue [None]
  - Oral mucosal exfoliation [None]
  - Tongue discomfort [None]
  - Hypoaesthesia oral [None]

NARRATIVE: CASE EVENT DATE: 20220915
